FAERS Safety Report 9185757 (Version 3)
Quarter: 2013Q2

REPORT INFORMATION
  Report Type: Spontaneous
  Country: US (occurrence: US)
  Receive Date: 20130325
  Receipt Date: 20130502
  Transmission Date: 20140414
  Serious: Yes (Hospitalization, Other)
  Sender: FDA-Public Use
  Company Number: US-ALLERGAN-1300014US

PATIENT
  Age: 79 Year
  Sex: Female

DRUGS (9)
  1. LUMIGAN? 0.01% [Suspect]
     Indication: INTRAOCULAR PRESSURE INCREASED
     Dosage: 1 GTT OD, QHS
     Route: 047
     Dates: start: 201206
  2. LUMIGAN? 0.01% [Suspect]
     Dosage: 1 GTT OD, QHS
     Route: 047
  3. BRIMONIDINE [Suspect]
     Indication: GLAUCOMA
     Dosage: 1 DROP TO RIGHT EYE TWICE PER WEEK
     Route: 047
     Dates: start: 201206, end: 201209
  4. AUGMENTIN [Suspect]
     Indication: DIVERTICULITIS
     Dosage: 800 MG, UNK
  5. COZAAR [Concomitant]
     Indication: HYPERTENSION
     Dosage: 25 MG, QD
     Route: 048
  6. ATIVAN [Concomitant]
     Indication: INSOMNIA
     Dosage: 0.5 MG, QHS
     Route: 048
  7. OTC EYE DROPS NOS [Concomitant]
     Indication: DRY EYE
     Dosage: UNK UNK, PRN
     Route: 047
  8. OTC EYE DROPS NOS [Concomitant]
     Indication: EYE PRURITUS
  9. LOPERAMIDE [Concomitant]
     Indication: IRRITABLE BOWEL SYNDROME
     Dosage: UNK UNK, PRN

REACTIONS (13)
  - Diverticulitis [Unknown]
  - Hepatic cyst [Unknown]
  - Cardiac failure congestive [Unknown]
  - Tachycardia [Unknown]
  - Palpitations [Unknown]
  - Rash erythematous [Unknown]
  - Fatigue [Unknown]
  - Drug hypersensitivity [Unknown]
  - Alopecia [Unknown]
  - Growth of eyelashes [Unknown]
  - Rhinorrhoea [Unknown]
  - Sneezing [Unknown]
  - Pruritus [Unknown]
